FAERS Safety Report 5789007-X (Version None)
Quarter: 2008Q2

REPORT INFORMATION
  Report Type: 
  Country: None (occurrence: None)
  Receive Date: 20080626
  Receipt Date: 20080618
  Transmission Date: 20081010
  Serious: Yes (Congenital Anomaly)
  Sender: FDA-Public Use
  Company Number: A0687287A

PATIENT
  Sex: Female

DRUGS (2)
  1. PAXIL [Suspect]
     Indication: ANXIETY
     Dosage: 40MG PER DAY
     Dates: start: 19960101, end: 20020101
  2. LEXAPRO [Concomitant]
     Indication: ANXIETY
     Dates: start: 20020101, end: 20040101

REACTIONS (6)
  - CARDIAC MURMUR [None]
  - CHEST PAIN [None]
  - DRUG EXPOSURE DURING PREGNANCY [None]
  - DYSPNOEA [None]
  - HEART DISEASE CONGENITAL [None]
  - PALPITATIONS [None]
